FAERS Safety Report 8158951-0 (Version None)
Quarter: 2012Q1

REPORT INFORMATION
  Report Type: 
  Country: None (occurrence: None)
  Receive Date: 20120223
  Receipt Date: 20120221
  Transmission Date: 20120608
  Serious: Yes (Death)
  Sender: FDA-Public Use
  Company Number: US-SANOFI-AVENTIS-2012SA011323

PATIENT
  Age: 61 Year

DRUGS (1)
  1. ELOXATIN [Suspect]
     Route: 041

REACTIONS (1)
  - DEATH [None]
